FAERS Safety Report 26083692 (Version 2)
Quarter: 2025Q4

REPORT INFORMATION
  Report Type: Spontaneous
  Country: AR (occurrence: AR)
  Receive Date: 20251124
  Receipt Date: 20251209
  Transmission Date: 20260118
  Serious: No
  Sender: PFIZER
  Company Number: AR-PFIZER INC-202500229314

PATIENT
  Age: 14 Year
  Sex: Male

DRUGS (1)
  1. GENOTROPIN [Suspect]
     Active Substance: SOMATROPIN
     Indication: Short stature
     Dosage: 1.3 MG, 1X/DAY
     Dates: start: 20251112, end: 20251118

REACTIONS (5)
  - Drug dose omission by device [Unknown]
  - Product knowledge deficit [Recovered/Resolved]
  - Device breakage [Unknown]
  - Wrong technique in device usage process [Unknown]
  - Product communication issue [Unknown]

NARRATIVE: CASE EVENT DATE: 20251117
